FAERS Safety Report 7844274 (Version 8)
Quarter: 2014Q4

REPORT INFORMATION
  Report Type: Spontaneous
  Country: US (occurrence: US)
  Receive Date: 20110307
  Receipt Date: 20141024
  Transmission Date: 20150529
  Serious: Yes (Hospitalization, Other)
  Sender: FDA-Public Use
  Company Number: US-ASTRAZENECA-2011SE11057

PATIENT
  Age: 70 Year
  Sex: Female
  Weight: 39 kg

DRUGS (19)
  1. XOPENEX [Concomitant]
     Active Substance: LEVALBUTEROL HYDROCHLORIDE
  2. VENTOLIN [Concomitant]
     Active Substance: ALBUTEROL SULFATE
     Indication: PROPHYLAXIS
     Dosage: 90 MCG PER ACTUATION PRN
  3. ALPRAZOLAM. [Concomitant]
     Active Substance: ALPRAZOLAM
     Indication: ANXIETY
  4. MIRTAZAPINE. [Concomitant]
     Active Substance: MIRTAZAPINE
     Indication: INSOMNIA
     Route: 048
     Dates: start: 2010
  5. BUFTIRONE [Concomitant]
     Indication: ANXIETY
     Route: 048
     Dates: start: 201408
  6. LISINOPRIL. [Suspect]
     Active Substance: LISINOPRIL
     Indication: HYPERTENSION
     Route: 048
  7. IPRATROPIUM BROMIDE. [Concomitant]
     Active Substance: IPRATROPIUM BROMIDE
     Indication: DYSPNOEA
     Dosage: LITTLE VIALS TID
  8. FENTANYL. [Concomitant]
     Active Substance: FENTANYL
  9. BUFTIRONE [Concomitant]
     Indication: DEPRESSION
     Route: 048
     Dates: start: 201408
  10. SYMBICORT [Suspect]
     Active Substance: BUDESONIDE\FORMOTEROL FUMARATE DIHYDRATE
     Indication: CHRONIC OBSTRUCTIVE PULMONARY DISEASE
     Dosage: 160/4.5, 2 PUFFS, TWO TIMES A DAY
     Route: 055
     Dates: start: 201409
  11. ALBUTEROL. [Concomitant]
     Active Substance: ALBUTEROL
     Indication: PROPHYLAXIS
     Dosage: 90 MCG PER ACTUATION PRN
  12. OXYGEN. [Concomitant]
     Active Substance: OXYGEN
  13. IPRATROPIUM BROMIDE. [Concomitant]
     Active Substance: IPRATROPIUM BROMIDE
     Indication: PROPHYLAXIS
     Dosage: LITTLE VIALS TID
  14. MIRTAZAPINE. [Concomitant]
     Active Substance: MIRTAZAPINE
     Indication: DEPRESSION
     Route: 048
     Dates: start: 2010
  15. SYMBICORT [Suspect]
     Active Substance: BUDESONIDE\FORMOTEROL FUMARATE DIHYDRATE
     Indication: EMPHYSEMA
     Dosage: 16.5/4.5 2 PUFFS, TWO TIMES A DAY
     Route: 055
     Dates: start: 2009
  16. SYMBICORT [Suspect]
     Active Substance: BUDESONIDE\FORMOTEROL FUMARATE DIHYDRATE
     Indication: EMPHYSEMA
     Dosage: 160/4.5, 2 PUFFS, TWO TIMES A DAY
     Route: 055
     Dates: start: 201409
  17. SYMBICORT [Suspect]
     Active Substance: BUDESONIDE\FORMOTEROL FUMARATE DIHYDRATE
     Indication: CHRONIC OBSTRUCTIVE PULMONARY DISEASE
     Dosage: 16.5/4.5 2 PUFFS, TWO TIMES A DAY
     Route: 055
     Dates: start: 2009
  18. MIRTAZAPINE. [Concomitant]
     Active Substance: MIRTAZAPINE
     Indication: APPETITE DISORDER
     Route: 048
     Dates: start: 2010
  19. FORTEO [Concomitant]
     Active Substance: TERIPARATIDE

REACTIONS (15)
  - Perfume sensitivity [Unknown]
  - Spinal compression fracture [Unknown]
  - Osteoporosis [Unknown]
  - Drug hypersensitivity [Unknown]
  - Body height decreased [Unknown]
  - Hearing impaired [Unknown]
  - Intentional product misuse [Unknown]
  - Sinusitis [Unknown]
  - Sinus disorder [Unknown]
  - Depression [Unknown]
  - Chronic obstructive pulmonary disease [Unknown]
  - Emphysema [Unknown]
  - Tremor [Unknown]
  - Anxiety [Unknown]
  - Asthma [Unknown]

NARRATIVE: CASE EVENT DATE: 2009
